FAERS Safety Report 9322272 (Version 3)
Quarter: 2013Q4

REPORT INFORMATION
  Report Type: Spontaneous
  Country: GB (occurrence: GB)
  Receive Date: 20130531
  Receipt Date: 20131017
  Transmission Date: 20140711
  Serious: Yes (Hospitalization)
  Sender: FDA-Public Use
  Company Number: GB-GLAXOSMITHKLINE-B0893978A

PATIENT
  Age: 88 Year
  Sex: Female

DRUGS (6)
  1. ACYCLOVIR [Suspect]
     Indication: HERPES ZOSTER
     Dosage: 4000MG PER DAY
     Route: 048
     Dates: start: 20130420, end: 20130427
  2. SPIRONOLACTONE [Concomitant]
  3. RAMIPRIL [Concomitant]
  4. BENDROFLUMETHIAZIDE [Concomitant]
  5. ZOPICLONE [Concomitant]
  6. LACTULOSE [Concomitant]

REACTIONS (4)
  - Inappropriate antidiuretic hormone secretion [Recovered/Resolved]
  - Hyponatraemia [Recovered/Resolved]
  - Confusional state [Recovered/Resolved]
  - Mobility decreased [Unknown]
